FAERS Safety Report 23282547 (Version 1)
Quarter: 2023Q4

REPORT INFORMATION
  Report Type: Spontaneous
  Country: US (occurrence: US)
  Receive Date: 20231211
  Receipt Date: 20231211
  Transmission Date: 20240110
  Serious: No
  Sender: FDA-Public Use
  Company Number: US-BRISTOL-MYERS SQUIBB COMPANY-2023-178343

PATIENT
  Age: 72 Year
  Sex: Female

DRUGS (2)
  1. SPRYCEL [Suspect]
     Active Substance: DASATINIB
     Indication: Acute lymphocytic leukaemia
     Route: 048
     Dates: start: 202308
  2. SPRYCEL [Suspect]
     Active Substance: DASATINIB

REACTIONS (3)
  - Headache [Unknown]
  - Nausea [Unknown]
  - Fatigue [Unknown]
